FAERS Safety Report 11719994 (Version 3)
Quarter: 2015Q4

REPORT INFORMATION
  Report Type: Spontaneous
  Country: IT (occurrence: IT)
  Receive Date: 20151110
  Receipt Date: 20151207
  Transmission Date: 20160304
  Serious: Yes (Other)
  Sender: FDA-Public Use
  Company Number: IT-ROCHE-1656573

PATIENT
  Age: 71 Year
  Sex: Female

DRUGS (1)
  1. VALIUM [Suspect]
     Active Substance: DIAZEPAM
     Indication: MAJOR DEPRESSION
     Route: 048
     Dates: start: 20151031, end: 20151031

REACTIONS (5)
  - Overdose [Unknown]
  - Sopor [Recovering/Resolving]
  - Agitation [Recovering/Resolving]
  - Sluggishness [Recovering/Resolving]
  - Dyspnoea [Recovering/Resolving]

NARRATIVE: CASE EVENT DATE: 20151031
